FAERS Safety Report 25573875 (Version 1)
Quarter: 2025Q3

REPORT INFORMATION
  Report Type: Report from Study
  Country: US (occurrence: US)
  Receive Date: 20250717
  Receipt Date: 20250717
  Transmission Date: 20251020
  Serious: Yes (Other)
  Sender: MALLINCKRODT
  Company Number: US-MALLINCKRODT-MNK202504274

PATIENT
  Age: 76 Year
  Sex: Female

DRUGS (1)
  1. CORTICOTROPIN [Suspect]
     Active Substance: CORTICOTROPIN
     Indication: Iridocyclitis
     Dosage: 80 UNITS
     Route: 058
     Dates: start: 20250621

REACTIONS (2)
  - Spinal operation [Unknown]
  - Eye operation [Unknown]

NARRATIVE: CASE EVENT DATE: 20250101
